FAERS Safety Report 6680005-0 (Version None)
Quarter: 2010Q2

REPORT INFORMATION
  Report Type: 
  Country: None (occurrence: None)
  Receive Date: 20100413
  Receipt Date: 20100402
  Transmission Date: 20101027
  Serious: Yes (Death, Other)
  Sender: FDA-Public Use
  Company Number: US-BAXTER-2010BH008869

PATIENT
  Age: 50 Year
  Sex: Male

DRUGS (2)
  1. LORAZEPAM [Suspect]
     Indication: GRAND MAL CONVULSION
     Route: 040
  2. LORAZEPAM [Suspect]
     Route: 042

REACTIONS (2)
  - ACCIDENTAL OVERDOSE [None]
  - LACTIC ACIDOSIS [None]
